FAERS Safety Report 25124274 (Version 1)
Quarter: 2025Q1

REPORT INFORMATION
  Report Type: Other
  Country: CA (occurrence: CA)
  Receive Date: 20250326
  Receipt Date: 20250326
  Transmission Date: 20250409
  Serious: No
  Sender: TOLMAR
  Company Number: CA-20250311-e1b5a4

PATIENT
  Age: 83 Year
  Sex: Male

DRUGS (4)
  1. ELIGARD [Suspect]
     Active Substance: LEUPROLIDE ACETATE
     Indication: Prostate cancer
     Dosage: 45 MILLIGRAMS, Q 6 MONTHS
     Route: 058
     Dates: start: 20250311
  2. ELIGARD [Suspect]
     Active Substance: LEUPROLIDE ACETATE
     Dosage: 45 MILLIGRAMS, Q 6 MONTHS
     Route: 058
     Dates: start: 20240403
  3. ELIGARD [Suspect]
     Active Substance: LEUPROLIDE ACETATE
     Indication: Prostate cancer
     Dosage: 22.5 MILLIGRAMS, 3 MONTHS
     Route: 058
     Dates: start: 20200416
  4. DAROLUTAMIDE [Concomitant]
     Active Substance: DAROLUTAMIDE
     Indication: Product used for unknown indication

REACTIONS (1)
  - Intentional product use issue [Recovered/Resolved]

NARRATIVE: CASE EVENT DATE: 20250311
